FAERS Safety Report 4622346-4 (Version None)
Quarter: 2005Q1

REPORT INFORMATION
  Report Type: 
  Country: None (occurrence: None)
  Receive Date: 20050330
  Receipt Date: 20040820
  Transmission Date: 20050727
  Serious: Yes (Hospitalization, Other)
  Sender: FDA-Public Use
  Company Number: 200416304US

PATIENT
  Sex: Female
  Weight: 76.4 kg

DRUGS (15)
  1. ARAVA [Suspect]
     Indication: ARTHRITIS
     Dosage: DOSE: NOT PROVIDED
     Dates: start: 20040801
  2. REMICADE [Suspect]
     Indication: ARTHRITIS
     Dosage: DOSE: NOT PROVIDED
     Dates: start: 20020211, end: 20030701
  3. NAPROSYN [Concomitant]
     Indication: ARTHRITIS
  4. TRAMADOL HCL [Concomitant]
     Indication: ARTHRITIS
     Dosage: DOSE: NOT PROVIDED
  5. PREDNISONE [Concomitant]
     Indication: ARTHRITIS
  6. LASIX [Concomitant]
     Indication: FLUID RETENTION
  7. AMARYL [Concomitant]
     Indication: DIABETES MELLITUS
  8. MAG-OX [Concomitant]
  9. POTASSIUM CHLORIDE [Concomitant]
     Route: 048
  10. LOTENSIN [Concomitant]
     Indication: HYPERTENSION
  11. PROTONIX [Concomitant]
  12. AMBIEN [Concomitant]
  13. COREG [Concomitant]
     Indication: HYPERTENSION
  14. COVERA-HS [Concomitant]
     Indication: HYPERTENSION
  15. ACTOS [Concomitant]
     Indication: DIABETES MELLITUS

REACTIONS (33)
  - ARTHRALGIA [None]
  - ASTHENIA [None]
  - BACK PAIN [None]
  - BLOOD CALCIUM DECREASED [None]
  - BLOOD CHLORIDE DECREASED [None]
  - BLOOD GLUCOSE INCREASED [None]
  - CARDIAC MURMUR [None]
  - CARDIOMEGALY [None]
  - COMPUTERISED TOMOGRAM ABNORMAL [None]
  - CONTUSION [None]
  - DYSPNOEA [None]
  - ECCHYMOSIS [None]
  - ENCEPHALITIS HERPES [None]
  - HAEMATOCRIT DECREASED [None]
  - HAEMOGLOBIN DECREASED [None]
  - HEART RATE INCREASED [None]
  - HERPES SIMPLEX [None]
  - HERPES SIMPLEX DNA TEST POSITIVE [None]
  - HYPERTENSION [None]
  - HYPONATRAEMIA [None]
  - LETHARGY [None]
  - LIPASE INCREASED [None]
  - MENINGITIS VIRAL [None]
  - MYALGIA [None]
  - MYOPATHY STEROID [None]
  - OEDEMA PERIPHERAL [None]
  - PCO2 DECREASED [None]
  - RASH [None]
  - RED BLOOD CELL COUNT DECREASED [None]
  - RHONCHI [None]
  - SWELLING [None]
  - TREMOR [None]
  - WHEEZING [None]
